FAERS Safety Report 9731843 (Version 1)
Quarter: 2013Q4

REPORT INFORMATION
  Report Type: Spontaneous
  Country: US (occurrence: None)
  Receive Date: 20131204
  Receipt Date: 20131204
  Transmission Date: 20140711
  Serious: No
  Sender: FDA-Public Use
  Company Number: None

PATIENT
  Age: 71 Year
  Sex: Male
  Weight: 97.98 kg

DRUGS (1)
  1. OXYCODONE-ACETAMINOPHEN 10-325 [Suspect]
     Indication: BACK PAIN
     Dosage: 10-325  STRENGTH 120 QUANITY 4-A-DAY BY MOUTH
     Route: 048
     Dates: start: 20131106, end: 20131108

REACTIONS (1)
  - Product quality issue [None]
